FAERS Safety Report 24712287 (Version 1)
Quarter: 2024Q4

REPORT INFORMATION
  Report Type: Report from Study
  Country: PH (occurrence: PH)
  Receive Date: 20241209
  Receipt Date: 20241209
  Transmission Date: 20250115
  Serious: Yes (Death)
  Sender: OTSUKA
  Company Number: PH-OTSUKA-2024_009902

PATIENT
  Age: 80 Year
  Sex: Female

DRUGS (4)
  1. TOLVAPTAN [Suspect]
     Active Substance: TOLVAPTAN
     Indication: Cardiac disorder
     Dosage: 1 DF (15 MG 1 TABLET TWO TO THREE TIMES A WEEK)
     Route: 065
     Dates: start: 20221101
  2. TOLVAPTAN [Suspect]
     Active Substance: TOLVAPTAN
     Dosage: UNK UNK, BID (15 MG 1 TABLET AT LUNCH HALF TABLET AT EVENING DAILY)
     Route: 065
  3. TOLVAPTAN [Suspect]
     Active Substance: TOLVAPTAN
     Dosage: 1 DF, QD (15 MG 1 TABLET AT LUNCH)
     Route: 065
  4. TOLVAPTAN [Suspect]
     Active Substance: TOLVAPTAN
     Dosage: 1 DF, BIW (15 MG 1 TABLET TWICE A WEEK)
     Route: 048
     Dates: start: 2022, end: 20240810

REACTIONS (4)
  - Cardiac failure [Fatal]
  - Inappropriate schedule of product administration [Unknown]
  - Wrong technique in product usage process [Unknown]
  - Overdose [Unknown]

NARRATIVE: CASE EVENT DATE: 20221101
